FAERS Safety Report 12514465 (Version 1)
Quarter: 2016Q2

REPORT INFORMATION
  Report Type: Spontaneous
  Country: US (occurrence: US)
  Receive Date: 20160630
  Receipt Date: 20160630
  Transmission Date: 20160815
  Serious: No
  Sender: FDA-Public Use
  Company Number: US-JNJFOC-20160508894

PATIENT
  Sex: Female
  Weight: 73.03 kg

DRUGS (2)
  1. IRON [Concomitant]
     Active Substance: IRON
     Indication: ANAEMIA
     Route: 065
  2. XARELTO [Suspect]
     Active Substance: RIVAROXABAN
     Indication: DEEP VEIN THROMBOSIS
     Route: 048

REACTIONS (5)
  - Mouth haemorrhage [Recovered/Resolved]
  - Eye pain [Not Recovered/Not Resolved]
  - Pain [Not Recovered/Not Resolved]
  - Ocular hyperaemia [Not Recovered/Not Resolved]
  - Bleeding time abnormal [Unknown]

NARRATIVE: CASE EVENT DATE: 2016
